FAERS Safety Report 4801138-7 (Version None)
Quarter: 2005Q4

REPORT INFORMATION
  Report Type: 
  Country: None (occurrence: None)
  Receive Date: 20051017
  Receipt Date: 20051003
  Transmission Date: 20060501
  Serious: Yes (Hospitalization)
  Sender: FDA-Public Use
  Company Number: FR-AMGEN-UK152739

PATIENT
  Age: 39 Year
  Sex: Male

DRUGS (5)
  1. NEUPOGEN [Suspect]
     Indication: HIV INFECTION
     Route: 065
     Dates: start: 20050830, end: 20050830
  2. NORVIR [Concomitant]
     Route: 065
     Dates: start: 20040701
  3. ZIAGEN [Concomitant]
     Route: 065
     Dates: start: 20050309
  4. TELZIR [Concomitant]
     Route: 065
     Dates: start: 20041004
  5. TRIPANAVIR [Concomitant]
     Route: 065
     Dates: start: 20040701

REACTIONS (1)
  - PYREXIA [None]
